FAERS Safety Report 22107479 (Version 1)
Quarter: 2023Q1

REPORT INFORMATION
  Report Type: Spontaneous
  Country: SE (occurrence: SE)
  Receive Date: 20230317
  Receipt Date: 20230317
  Transmission Date: 20230418
  Serious: Yes (Hospitalization)
  Sender: FDA-Public Use
  Company Number: None

PATIENT
  Age: 43 Year
  Sex: Female

DRUGS (1)
  1. VENLAFAXINE [Suspect]
     Active Substance: VENLAFAXINE HYDROCHLORIDE
     Indication: Product used for unknown indication
     Dosage: UNCLEAR QUANTITY, 150+50 MG, 100 PCS
     Route: 065
     Dates: start: 20210820, end: 20210820

REACTIONS (8)
  - Tachycardia [Unknown]
  - Pyrexia [Unknown]
  - Stress cardiomyopathy [Unknown]
  - Fatigue [Unknown]
  - Seizure [Unknown]
  - Intentional overdose [Unknown]
  - Serotonin syndrome [Unknown]
  - Intentional self-injury [Unknown]

NARRATIVE: CASE EVENT DATE: 20210820
